FAERS Safety Report 17210522 (Version 2)
Quarter: 2021Q3

REPORT INFORMATION
  Report Type: Other
  Country: CA (occurrence: CA)
  Receive Date: 20191227
  Receipt Date: 20210825
  Transmission Date: 20211014
  Serious: No
  Sender: FDA-Public Use
  Company Number: CA-TOLMAR, INC.-19CA000632

PATIENT
  Age: 63 Year
  Sex: Male
  Weight: 97 kg

DRUGS (2)
  1. ELIGARD [Suspect]
     Active Substance: LEUPROLIDE ACETATE
     Dosage: 45 MG, Q6MONTHS
     Route: 058
     Dates: start: 20210602
  2. ELIGARD [Suspect]
     Active Substance: LEUPROLIDE ACETATE
     Indication: PROSTATE CANCER
     Dosage: 45 MG, Q6MONTHS
     Route: 058
     Dates: start: 20190424

REACTIONS (6)
  - Poor quality sleep [Unknown]
  - Headache [Unknown]
  - Anxiety [Recovering/Resolving]
  - Weight decreased [Recovered/Resolved]
  - Injection site pain [Unknown]
  - Blood iron increased [Unknown]

NARRATIVE: CASE EVENT DATE: 201904
